FAERS Safety Report 17111598 (Version 7)
Quarter: 2023Q1

REPORT INFORMATION
  Report Type: Other
  Country: US (occurrence: None)
  Receive Date: 20191204
  Receipt Date: 20230207
  Transmission Date: 20230418
  Serious: Yes (Hospitalization, Other)
  Sender: FDA-Public Use
  Company Number: US-ROCHE-2236635

PATIENT
  Age: 49 Year
  Sex: Female
  Weight: 104.42 kg

DRUGS (3)
  1. RITUXAN [Suspect]
     Active Substance: RITUXIMAB
     Indication: Relapsing-remitting multiple sclerosis
     Dosage: ONGOING : UNKNOWN
     Route: 065
  2. OCREVUS [Suspect]
     Active Substance: OCRELIZUMAB
     Indication: Relapsing-remitting multiple sclerosis
     Dosage: ON 03/MAY/2019, SHE RECEIVED OCRELIZUMAB.
     Route: 042
     Dates: start: 20190405, end: 20210224
  3. LEXAPRO [Suspect]
     Active Substance: ESCITALOPRAM OXALATE
     Indication: Post-traumatic stress disorder
     Route: 065

REACTIONS (18)
  - Bronchitis [Recovering/Resolving]
  - Pharyngitis streptococcal [Not Recovered/Not Resolved]
  - Vomiting [Unknown]
  - Bedridden [Unknown]
  - Cystitis [Not Recovered/Not Resolved]
  - Intentional product use issue [Unknown]
  - Suicidal ideation [Recovered/Resolved]
  - Urinary tract infection [Recovered/Resolved]
  - Post-traumatic stress disorder [Not Recovered/Not Resolved]
  - Tremor [Recovered/Resolved]
  - Panic attack [Recovered/Resolved]
  - Multiple sclerosis relapse [Unknown]
  - Malaise [Unknown]
  - Weight decreased [Unknown]
  - Influenza [Not Recovered/Not Resolved]
  - Pain [Not Recovered/Not Resolved]
  - Asthenia [Not Recovered/Not Resolved]
  - Abdominal discomfort [Unknown]

NARRATIVE: CASE EVENT DATE: 20191104
